FAERS Safety Report 8906124 (Version 3)
Quarter: 2012Q4

REPORT INFORMATION
  Report Type: 
  Country: US (occurrence: US)
  Receive Date: 20121112
  Receipt Date: 20121205
  Transmission Date: 20130627
  Serious: No
  Sender: FDA-Public Use
  Company Number: US-PFIZER INC-2012279078

PATIENT
  Sex: Female

DRUGS (3)
  1. CELEBREX [Suspect]
     Indication: PAIN
     Dosage: 100 mg, as needed
  2. CELEBREX [Suspect]
     Indication: PAIN FOOT
  3. TYLENOL [Concomitant]

REACTIONS (2)
  - Drug effect decreased [Unknown]
  - Drug clearance decreased [Unknown]
